FAERS Safety Report 17570491 (Version 1)
Quarter: 2020Q1

REPORT INFORMATION
  Report Type: Spontaneous
  Country: CN (occurrence: CN)
  Receive Date: 20200323
  Receipt Date: 20200323
  Transmission Date: 20200409
  Serious: Yes (Other)
  Sender: FDA-Public Use
  Company Number: CN-SUN PHARMACEUTICAL INDUSTRIES LTD-2020R1-241272

PATIENT
  Age: 26 Year
  Sex: Female

DRUGS (9)
  1. METHYLPREDNISOLONE. [Suspect]
     Active Substance: METHYLPREDNISOLONE
     Indication: INFLAMMATION
     Dosage: 80 MILLIGRAM, DAILY
     Route: 065
  2. CLINDAMYCIN. [Suspect]
     Active Substance: CLINDAMYCIN
     Indication: PRODUCT USED FOR UNKNOWN INDICATION
     Dosage: UNK
     Route: 065
  3. CEFOXITIN [Suspect]
     Active Substance: CEFOXITIN SODIUM
     Indication: PRODUCT USED FOR UNKNOWN INDICATION
     Dosage: UNK
     Route: 065
  4. SULBACTAM SODIUM [Suspect]
     Active Substance: SULBACTAM SODIUM
     Indication: ACUTE RESPIRATORY DISTRESS SYNDROME
     Dosage: 3 GRAM, TID
     Route: 065
  5. LINEZOLIDE [Suspect]
     Active Substance: LINEZOLID
     Indication: ANTI-INFECTIVE THERAPY
     Dosage: 0.6 GRAM, BID
     Route: 065
  6. AMPICILLIN [Suspect]
     Active Substance: AMPICILLIN
     Indication: ANTI-INFECTIVE THERAPY
     Dosage: UNK
     Route: 065
  7. HEPARIN [Suspect]
     Active Substance: HEPARIN SODIUM
     Indication: PRODUCT USED FOR UNKNOWN INDICATION
     Dosage: 100 U, DAILY
  8. CEFOPERAZONE [Suspect]
     Active Substance: CEFOPERAZONE
     Indication: ACUTE RESPIRATORY DISTRESS SYNDROME
     Dosage: 3 GRAM, TID
     Route: 065
  9. OSELTAMIVIR [Suspect]
     Active Substance: OSELTAMIVIR
     Indication: ACUTE RESPIRATORY DISTRESS SYNDROME
     Dosage: 75 MILLIGRAM, BID

REACTIONS (3)
  - Drug ineffective [Unknown]
  - Premature delivery [Unknown]
  - Exposure during pregnancy [Unknown]
